FAERS Safety Report 9122808 (Version 1)
Quarter: 2013Q1

REPORT INFORMATION
  Report Type: Spontaneous
  Country: FR (occurrence: FR)
  Receive Date: 20130115
  Receipt Date: 20130115
  Transmission Date: 20140127
  Serious: Yes (Hospitalization, Other)
  Sender: FDA-Public Use
  Company Number: FR-PFIZER INC-2012296261

PATIENT
  Age: 90 Year
  Sex: Female

DRUGS (4)
  1. CORDARONE [Suspect]
     Indication: ARRHYTHMIA
     Dosage: 200 MG, DAILY
     Route: 048
     Dates: start: 201207
  2. LEVOTHYROX [Concomitant]
     Indication: THYROID DISORDER
     Dosage: UNK
     Dates: start: 201209
  3. LASILIX [Concomitant]
     Dosage: UNK
     Dates: start: 201209
  4. KALEROID [Concomitant]
     Dosage: UNK
     Dates: start: 201209

REACTIONS (4)
  - Cardiac failure [Unknown]
  - Dyspnoea [Unknown]
  - Asthenia [Unknown]
  - Muscular weakness [Unknown]
